FAERS Safety Report 6245628-1 (Version None)
Quarter: 2009Q2

REPORT INFORMATION
  Report Type: 
  Country: None (occurrence: None)
  Receive Date: 20090625
  Receipt Date: 20080822
  Transmission Date: 20091009
  Serious: No
  Sender: FDA-Public Use
  Company Number: US-ASTRAZENECA-2008UW16431

PATIENT
  Sex: Female

DRUGS (7)
  1. ZOLADEX [Suspect]
     Indication: BREAST CANCER
     Route: 058
  2. ZOLADEX [Suspect]
     Route: 058
  3. ADDERALL XR 10 [Concomitant]
  4. WELLBUTRIN [Concomitant]
  5. FEMARA [Concomitant]
  6. CALCIUM [Concomitant]
  7. LIDOCAINE NEEDLE [Concomitant]

REACTIONS (6)
  - HEADACHE [None]
  - HOT FLUSH [None]
  - INCORRECT DOSE ADMINISTERED [None]
  - INJECTION SITE HAEMATOMA [None]
  - INTENTIONAL OVERDOSE [None]
  - LIBIDO DECREASED [None]
